FAERS Safety Report 9426854 (Version 1)
Quarter: 2013Q3

REPORT INFORMATION
  Report Type: Spontaneous
  Country: US (occurrence: US)
  Receive Date: 20130730
  Receipt Date: 20130730
  Transmission Date: 20140515
  Serious: Yes (Other)
  Sender: FDA-Public Use
  Company Number: US-SANOFI-AVENTIS-2013SA049626

PATIENT
  Sex: Male

DRUGS (1)
  1. AMBIEN [Suspect]

REACTIONS (2)
  - Suicide attempt [Unknown]
  - Amnesia [Unknown]
